FAERS Safety Report 8612739-2 (Version None)
Quarter: 2012Q3

REPORT INFORMATION
  Report Type: 
  Country: None (occurrence: None)
  Receive Date: 20120822
  Receipt Date: 20110902
  Transmission Date: 20120928
  Serious: No
  Sender: FDA-Public Use
  Company Number: US-ASTRAZENECA-2011SE51019

PATIENT
  Age: 52 Year
  Sex: Female

DRUGS (8)
  1. SYMBICORT [Suspect]
     Dosage: 80MCG-4.5MCG/INH 2 PUFFS 2 TIMES A DAY
     Route: 055
  2. LISINOPRIL AND HYDROCHLOROTHIAZIDE [Suspect]
     Dosage: 20/12.5 1 TABLET ONCE A DAY
     Route: 048
  3. PREDNISONE TAB [Concomitant]
  4. OMEPRAZOLE [Suspect]
     Dosage: 20 MG 2 DAILY
     Route: 048
  5. METOCLOPRAMIDE [Concomitant]
  6. HYDROXYZINE HYDROCHLORIDE [Concomitant]
  7. NEXIUM [Suspect]
     Indication: DYSPHAGIA
     Route: 048
  8. NEXIUM [Suspect]
     Route: 048
     Dates: start: 20110810

REACTIONS (12)
  - DYSPHAGIA [None]
  - COLONIC POLYP [None]
  - HAEMATEMESIS [None]
  - ABDOMINAL PAIN [None]
  - SCLERODERMA [None]
  - DYSPEPSIA [None]
  - VOMITING [None]
  - GASTROOESOPHAGEAL REFLUX DISEASE [None]
  - HYPERTENSION [None]
  - REGURGITATION [None]
  - ABDOMINAL MASS [None]
  - NAUSEA [None]
